FAERS Safety Report 21010465 (Version 1)
Quarter: 2022Q2

REPORT INFORMATION
  Report Type: Spontaneous
  Country: US (occurrence: US)
  Receive Date: 20220627
  Receipt Date: 20220627
  Transmission Date: 20220721
  Serious: Yes (Other)
  Sender: FDA-Public Use
  Company Number: US-Fresenius Medical Care Renal Therapies Group-FMC-2206-000828

PATIENT
  Age: 82 Year
  Sex: Male
  Weight: 70 kg

DRUGS (2)
  1. DELFLEX WITH DEXTROSE 1.5% LOW MAGNESIUM LOW CALCIUM [Suspect]
     Active Substance: CALCIUM CHLORIDE\DEXTROSE\MAGNESIUM CHLORIDE\SODIUM CHLORIDE\SODIUM LACTATE
     Indication: End stage renal disease
     Dosage: 2400 ML FOR 4 EXCHANGES WITH A LAST FILL OF 1500 ML AND A DAYTIME PAUSE OF 2400
     Route: 033
     Dates: start: 20190204
  2. DELFLEX WITH DEXTROSE 2.5% LOW MAGNESIUM LOW CALCIUM [Suspect]
     Active Substance: CALCIUM CHLORIDE\DEXTROSE\MAGNESIUM CHLORIDE\SODIUM CHLORIDE\SODIUM LACTATE
     Indication: End stage renal disease
     Dosage: 2400 ML FOR 4 EXCHANGES WITH A LAST FILL OF 1500 ML AND A DAYTIME PAUSE OF 2400
     Route: 033
     Dates: start: 20190204

REACTIONS (1)
  - Peritonitis bacterial [Recovered/Resolved]

NARRATIVE: CASE EVENT DATE: 20220603
